FAERS Safety Report 6965775-6 (Version None)
Quarter: 2010Q3

REPORT INFORMATION
  Report Type: 
  Country: None (occurrence: None)
  Receive Date: 20100903
  Receipt Date: 20100830
  Transmission Date: 20110219
  Serious: Yes (Hospitalization)
  Sender: FDA-Public Use
  Company Number: SE-BRISTOL-MYERS SQUIBB COMPANY-15201882

PATIENT
  Age: 37 Year
  Sex: Female

DRUGS (5)
  1. ORENCIA [Suspect]
     Dosage: LATEST INFUSION ON 04-JUN-2010; 5 TO 6 INF
     Dates: start: 20100222
  2. ORUDIS [Suspect]
     Dosage: ORUDIS RETARD
  3. ALVEDON [Suspect]
  4. DEXOFEN [Suspect]
  5. METHOTREXATE [Suspect]
     Dosage: 1DF=6 TABS 1 DAY/WK

REACTIONS (2)
  - CHOLELITHIASIS [None]
  - HEPATIC ENZYME INCREASED [None]
